FAERS Safety Report 8502180-5 (Version None)
Quarter: 2012Q3

REPORT INFORMATION
  Report Type: 
  Country: None (occurrence: None)
  Receive Date: 20120711
  Receipt Date: 20120629
  Transmission Date: 20120928
  Serious: Yes (Hospitalization, Other)
  Sender: FDA-Public Use
  Company Number: CA-JNJFOC-20120700879

PATIENT
  Sex: Female
  Weight: 73.1 kg

DRUGS (2)
  1. REMICADE [Suspect]
     Indication: CROHN'S DISEASE
     Route: 042
     Dates: start: 20090327
  2. AMOXICILLIN [Suspect]
     Indication: EAR INFECTION
     Route: 065
     Dates: start: 20120501

REACTIONS (2)
  - INTESTINAL OBSTRUCTION [None]
  - EAR INFECTION [None]
